FAERS Safety Report 7715091-X (Version None)
Quarter: 2011Q3

REPORT INFORMATION
  Report Type: 
  Country: None (occurrence: None)
  Receive Date: 20110829
  Receipt Date: 20110816
  Transmission Date: 20111222
  Serious: Yes (Other)
  Sender: FDA-Public Use
  Company Number: PHHY2010CA53096

PATIENT
  Sex: Male

DRUGS (3)
  1. ZOMETA [Suspect]
     Indication: PROSTATE CANCER
     Dosage: 4 MG EVERY 4 WEEKS
     Route: 042
     Dates: start: 20100714
  2. GRAVOL TAB [Concomitant]
     Dosage: UNK UKN, UNK
     Route: 065
  3. PREDNISOLONE [Concomitant]
     Dosage: UNK UKN, UNK
     Route: 065

REACTIONS (9)
  - NAUSEA [None]
  - BLOOD PRESSURE INCREASED [None]
  - HEART RATE DECREASED [None]
  - PROSTATIC SPECIFIC ANTIGEN INCREASED [None]
  - BLOOD CREATININE INCREASED [None]
  - BACK PAIN [None]
  - BODY TEMPERATURE DECREASED [None]
  - HOT FLUSH [None]
  - ARTHRALGIA [None]
